FAERS Safety Report 25597030 (Version 1)
Quarter: 2025Q3

REPORT INFORMATION
  Report Type: Other
  Country: EU (occurrence: EU)
  Receive Date: 20250723
  Receipt Date: 20250723
  Transmission Date: 20251021
  Serious: Yes (Life-Threatening, Other)
  Sender: BIOCON
  Company Number: None

PATIENT

DRUGS (4)
  1. SEMGLEE (INSULIN GLARGINE-YFGN) [Suspect]
     Active Substance: INSULIN GLARGINE-YFGN
     Indication: Diabetes mellitus
     Dosage: 14 UNITS ONCE DAILY
     Route: 065
     Dates: start: 20240823
  2. SEMGLEE (INSULIN GLARGINE-YFGN) [Suspect]
     Active Substance: INSULIN GLARGINE-YFGN
     Route: 065
  3. SEMGLEE (INSULIN GLARGINE-YFGN) [Suspect]
     Active Substance: INSULIN GLARGINE-YFGN
  4. SEMGLEE (INSULIN GLARGINE-YFGN) [Suspect]
     Active Substance: INSULIN GLARGINE-YFGN

REACTIONS (4)
  - Shock hypoglycaemic [Unknown]
  - Hypoglycaemia [Unknown]
  - Therapeutic response increased [Unknown]
  - Suspected product quality issue [Unknown]

NARRATIVE: CASE EVENT DATE: 20250101
